FAERS Safety Report 5218361-2 (Version None)
Quarter: 2007Q1

REPORT INFORMATION
  Report Type: 
  Country: None (occurrence: None)
  Receive Date: 20070119
  Receipt Date: 20070109
  Transmission Date: 20070707
  Serious: Yes (Hospitalization)
  Sender: FDA-Public Use
  Company Number: CERZ-11456

PATIENT
  Age: 5 Year
  Sex: Male
  Weight: 14 kg

DRUGS (1)
  1. CEREZYME [Suspect]
     Indication: GAUCHER'S DISEASE
     Dosage: 60 U/KG Q2WKS IV
     Route: 042
     Dates: start: 20050829

REACTIONS (3)
  - FOREARM FRACTURE [None]
  - PAIN [None]
  - SWELLING [None]
